FAERS Safety Report 10164635 (Version 1)
Quarter: 2014Q2

REPORT INFORMATION
  Report Type: Spontaneous
  Country: US (occurrence: US)
  Receive Date: 20140510
  Receipt Date: 20140510
  Transmission Date: 20141212
  Serious: No
  Sender: FDA-Public Use
  Company Number: US-BRISTOL-MYERS SQUIBB COMPANY-20133393

PATIENT
  Age: 56 Year
  Sex: Female

DRUGS (4)
  1. BYDUREON [Suspect]
     Dates: start: 20131111
  2. METFORMIN [Concomitant]
  3. ACTOS [Concomitant]
  4. GLIPIZIDE [Concomitant]

REACTIONS (3)
  - Rash pruritic [Recovering/Resolving]
  - Productive cough [Unknown]
  - Drug dose omission [Unknown]
